FAERS Safety Report 20202715 (Version 1)
Quarter: 2021Q4

REPORT INFORMATION
  Report Type: Spontaneous
  Country: US (occurrence: US)
  Receive Date: 20211218
  Receipt Date: 20211218
  Transmission Date: 20220303
  Serious: No
  Sender: FDA-Public Use
  Company Number: US-SA-SAC20211210000776

PATIENT
  Sex: Female

DRUGS (5)
  1. DUPIXENT [Suspect]
     Active Substance: DUPILUMAB
     Indication: Seasonal allergy
     Dosage: 300 MG, QOW
     Route: 058
  2. HUMALOG [Concomitant]
     Active Substance: INSULIN LISPRO
  3. IBUPROFEN [Concomitant]
     Active Substance: IBUPROFEN
  4. NOVOLOG [Concomitant]
     Active Substance: INSULIN ASPART
     Dosage: 325 MG
  5. TYLENOL [Concomitant]
     Active Substance: ACETAMINOPHEN

REACTIONS (2)
  - Dermatitis allergic [Recovered/Resolved]
  - Product use in unapproved indication [Unknown]
